FAERS Safety Report 9311831 (Version 1)
Quarter: 2013Q2

REPORT INFORMATION
  Report Type: Report from Study
  Country: AR (occurrence: AR)
  Receive Date: 20130528
  Receipt Date: 20130528
  Transmission Date: 20140414
  Serious: Yes (Other)
  Sender: FDA-Public Use
  Company Number: PHHY2013AR052996

PATIENT
  Sex: Female

DRUGS (3)
  1. DIOVAN [Suspect]
     Indication: HYPERTENSION
     Dosage: 160 MG, NO TREATMENT
  2. DIOVAN D [Suspect]
     Indication: HYPERTENSION
     Dosage: 1 DF, (160 MG VALS/ 12,5 MG HYDRO)
     Route: 048
  3. DIOVAN D [Suspect]
     Dosage: 1 DF, (160 MG VALS/ 25 MG HYDRO) DAILY
     Route: 048

REACTIONS (2)
  - Arrhythmia [Recovering/Resolving]
  - Drug dispensing error [Unknown]
